FAERS Safety Report 16846313 (Version 3)
Quarter: 2019Q4

REPORT INFORMATION
  Report Type: Report from Study
  Country: GB (occurrence: GB)
  Receive Date: 20190924
  Receipt Date: 20191021
  Transmission Date: 20200122
  Serious: Yes (Hospitalization)
  Sender: FDA-Public Use
  Company Number: PHHY2019GB219145

PATIENT
  Sex: Female

DRUGS (5)
  1. FOLIC ACID. [Concomitant]
     Active Substance: FOLIC ACID
     Indication: PSORIATIC ARTHROPATHY
     Dosage: 5 MG, 3 TIMES PER WEEK
     Route: 048
  2. LANSOPRAZOLE. [Concomitant]
     Active Substance: LANSOPRAZOLE
     Indication: REFLUX GASTRITIS
     Dosage: 30 MG, QD
     Route: 048
  3. ADCAL-D3 [Concomitant]
     Active Substance: CALCIUM CARBONATE\CHOLECALCIFEROL
     Indication: OSTEOPENIA
     Dosage: TBD
     Route: 048
  4. COSENTYX [Suspect]
     Active Substance: SECUKINUMAB
     Indication: PSORIATIC ARTHROPATHY
     Dosage: 150 MG, QMO (PREFILLED PEN)
     Route: 058
     Dates: start: 20171211
  5. METHOTREXATE. [Suspect]
     Active Substance: METHOTREXATE
     Indication: PSORIATIC ARTHROPATHY
     Dosage: 15 MG, QW
     Route: 048

REACTIONS (13)
  - Heart rate increased [Unknown]
  - Blood pressure increased [Unknown]
  - Liver function test increased [Unknown]
  - Cerebral disorder [Unknown]
  - Psoriatic arthropathy [Not Recovered/Not Resolved]
  - Arthropathy [Recovered/Resolved]
  - Temperature intolerance [Unknown]
  - Atrial fibrillation [Recovering/Resolving]
  - Cholelithiasis [Unknown]
  - Weight decreased [Unknown]
  - Hyperthyroidism [Recovering/Resolving]
  - Palpitations [Unknown]
  - Liver function test abnormal [Recovering/Resolving]
